FAERS Safety Report 17553432 (Version 4)
Quarter: 2020Q2

REPORT INFORMATION
  Report Type: Report from Study
  Country: CA (occurrence: CA)
  Receive Date: 20200317
  Receipt Date: 20200529
  Transmission Date: 20200713
  Serious: Yes (Other)
  Sender: FDA-Public Use
  Company Number: CA-JNJFOC-20200307551

PATIENT
  Age: 44 Year
  Sex: Female
  Weight: 78.6 kg

DRUGS (2)
  1. STELARA [Suspect]
     Active Substance: USTEKINUMAB
     Route: 058
     Dates: start: 20200204
  2. STELARA [Suspect]
     Active Substance: USTEKINUMAB
     Indication: CROHN^S DISEASE
     Dosage: ON 19-MAY-2020, THE PATIENT RECEIVED 9TH USTEKINUMAB INJECION FOR DOSE OF 90 MG AND PARTIAL HARVEY-B
     Route: 058
     Dates: start: 20190117

REACTIONS (3)
  - Crohn^s disease [Not Recovered/Not Resolved]
  - Drug ineffective [Unknown]
  - Urinary cystectomy [Not Recovered/Not Resolved]

NARRATIVE: CASE EVENT DATE: 20200304
